FAERS Safety Report 10497927 (Version 2)
Quarter: 2014Q4

REPORT INFORMATION
  Report Type: Spontaneous
  Country: US (occurrence: None)
  Receive Date: 20141002
  Receipt Date: 20141014
  Transmission Date: 20150528
  Serious: Yes (Disabling, Other)
  Sender: FDA-Public Use
  Company Number: FK201403867

PATIENT
  Age: 78 Year
  Sex: Female
  Weight: 70.76 kg

DRUGS (16)
  1. OMEPRAZOLE (OMEPRAZOLE) [Concomitant]
     Active Substance: OMEPRAZOLE
  2. ACULAR (KETOROLAC TROMETHAMINE) [Concomitant]
  3. ALPRAZOLAM (ALPRAZOLAM) [Concomitant]
     Active Substance: ALPRAZOLAM
  4. VIGAMOX (MOXIFLOXACIN HYDROCHLORIDE) [Concomitant]
  5. CLOTRIMAZOLE BETAMETHASONE (CLOTRASON) [Concomitant]
  6. SYNTHROID [Concomitant]
     Active Substance: LEVOTHYROXINE SODIUM
  7. NEOMYCIN POLYMYXIN DEXAMETHASONE [Concomitant]
  8. METOPROLOL TARTRATE (METOPROLOL TARTRATE) [Concomitant]
  9. GENTAMICIN. [Suspect]
     Active Substance: GENTAMICIN
     Indication: PRODUCT USED FOR UNKNOWN INDICATION
     Route: 031
     Dates: start: 20130903, end: 20130903
  10. LASIX [Concomitant]
     Active Substance: FUROSEMIDE
  11. ROBAFEN EM CLEAR (TUSSIN DM) [Concomitant]
  12. AMLACTIN (AMMONIUM LACTATE) [Concomitant]
  13. ASPIRIN (ACETYLSALICYLIC ACID) [Concomitant]
     Active Substance: ASPIRIN
  14. LIPITOR [Concomitant]
     Active Substance: ATORVASTATIN CALCIUM
  15. PRED FORTE (PREDNISOLONE ACETATE) [Concomitant]
  16. ALDACTONE [Concomitant]
     Active Substance: SPIRONOLACTONE

REACTIONS (6)
  - Off label use [None]
  - Blindness [None]
  - Eye pain [None]
  - Eye injury [None]
  - Incorrect route of drug administration [None]
  - Toxic anterior segment syndrome [None]
